FAERS Safety Report 19241445 (Version 1)
Quarter: 2021Q2

REPORT INFORMATION
  Report Type: Spontaneous
  Country: DE (occurrence: DE)
  Receive Date: 20210511
  Receipt Date: 20210511
  Transmission Date: 20210717
  Serious: Yes (Death, Other)
  Sender: FDA-Public Use
  Company Number: DE-IBIGEN-2021.10162

PATIENT
  Age: 59 Year
  Sex: Male

DRUGS (9)
  1. ENOXAPARIN [Suspect]
     Active Substance: ENOXAPARIN
     Indication: THROMBOSIS PROPHYLAXIS
     Dosage: (40MG/G)
     Route: 065
  2. AMIODARONE [Suspect]
     Active Substance: AMIODARONE
     Indication: PRODUCT USE IN UNAPPROVED INDICATION
     Dosage: ()
     Route: 065
  3. TCZ [TOCILIZUMAB] [Suspect]
     Active Substance: TOCILIZUMAB
     Indication: CYTOKINE STORM
     Route: 042
  4. NORADRENALIN [Suspect]
     Active Substance: NOREPINEPHRINE\NOREPINEPHRINE BITARTRATE
     Indication: OXYGEN SATURATION DECREASED
     Dosage: 20 MG/50 ML,15 ML/H
     Route: 065
  5. TCZ [TOCILIZUMAB] [Suspect]
     Active Substance: TOCILIZUMAB
     Indication: CYTOKINE STORM
     Route: 042
  6. AZITHROMYCIN ANHYDROUS. [Suspect]
     Active Substance: AZITHROMYCIN ANHYDROUS
     Indication: COVID-19
     Dosage: ()
     Route: 065
  7. HYDROXYCHLOROQUIN [Suspect]
     Active Substance: HYDROXYCHLOROQUINE SULFATE
     Indication: COVID-19
     Dosage: ()
     Route: 065
  8. PIPERACILLIN/TAZOBACTAM [Suspect]
     Active Substance: PIPERACILLIN SODIUM\TAZOBACTAM SODIUM
     Indication: ANTIBIOTIC THERAPY
     Dosage: ()
     Route: 065
  9. NORADRENALIN [Suspect]
     Active Substance: NOREPINEPHRINE\NOREPINEPHRINE BITARTRATE
     Indication: OXYGEN SATURATION DECREASED
     Dosage: 5MG/50 ML
     Route: 065

REACTIONS (6)
  - Drug ineffective [Unknown]
  - Cytokine storm [Unknown]
  - Acute respiratory distress syndrome [Unknown]
  - Coagulopathy [Unknown]
  - Multiple organ dysfunction syndrome [Fatal]
  - Hypercapnia [Unknown]
